FAERS Safety Report 12953775 (Version 2)
Quarter: 2016Q4

REPORT INFORMATION
  Report Type: Report from Study
  Country: JP (occurrence: JP)
  Receive Date: 20161118
  Receipt Date: 20161226
  Transmission Date: 20170207
  Serious: Yes (Other)
  Sender: FDA-Public Use
  Company Number: JP-ALXN-A201607884AA

PATIENT

DRUGS (1)
  1. STRENSIQ [Suspect]
     Active Substance: ASFOTASE ALFA
     Indication: HYPOPHOSPHATASIA
     Dosage: 2 MG/KG, TIW
     Route: 058
     Dates: start: 201603

REACTIONS (4)
  - Clavicle fracture [Recovering/Resolving]
  - Injection site pain [Recovering/Resolving]
  - Injection site discolouration [Not Recovered/Not Resolved]
  - Blood cortisol decreased [Not Recovered/Not Resolved]

NARRATIVE: CASE EVENT DATE: 201610
